FAERS Safety Report 19370175 (Version 7)
Quarter: 2023Q4

REPORT INFORMATION
  Report Type: Spontaneous
  Country: US (occurrence: US)
  Receive Date: 20210603
  Receipt Date: 20231025
  Transmission Date: 20240110
  Serious: Yes (Other)
  Sender: FDA-Public Use
  Company Number: US-GILEAD-2021-0534100

PATIENT
  Age: 34 Year
  Sex: Male

DRUGS (38)
  1. ATRIPLA [Suspect]
     Active Substance: EFAVIRENZ\EMTRICITABINE\TENOFOVIR DISOPROXIL FUMARATE
     Indication: HIV infection
     Dosage: UNK
     Route: 048
     Dates: start: 2011
  2. ATRIPLA [Suspect]
     Active Substance: EFAVIRENZ\EMTRICITABINE\TENOFOVIR DISOPROXIL FUMARATE
     Dosage: UNK
     Route: 048
     Dates: start: 201511, end: 201609
  3. ATRIPLA [Suspect]
     Active Substance: EFAVIRENZ\EMTRICITABINE\TENOFOVIR DISOPROXIL FUMARATE
     Dosage: UNK
     Route: 048
     Dates: start: 2012, end: 201609
  4. STRIBILD [Suspect]
     Active Substance: COBICISTAT\ELVITEGRAVIR\EMTRICITABINE\TENOFOVIR DISOPROXIL FUMARATE
     Indication: HIV infection
     Dosage: UNK
     Route: 048
     Dates: start: 2011
  5. STRIBILD [Suspect]
     Active Substance: COBICISTAT\ELVITEGRAVIR\EMTRICITABINE\TENOFOVIR DISOPROXIL FUMARATE
     Dosage: UNK
     Route: 048
     Dates: start: 20160927, end: 20170118
  6. STRIBILD [Suspect]
     Active Substance: COBICISTAT\ELVITEGRAVIR\EMTRICITABINE\TENOFOVIR DISOPROXIL FUMARATE
     Dosage: UNK
     Route: 048
     Dates: start: 20160927, end: 201704
  7. TRUVADA [Suspect]
     Active Substance: EMTRICITABINE\TENOFOVIR DISOPROXIL FUMARATE
     Indication: HIV infection
     Dosage: UNK
     Route: 065
     Dates: end: 201511
  8. TRUVADA [Suspect]
     Active Substance: EMTRICITABINE\TENOFOVIR DISOPROXIL FUMARATE
     Dosage: UNK
     Route: 048
     Dates: start: 2000, end: 2012
  9. PROLIA [Concomitant]
     Active Substance: DENOSUMAB
  10. FORTEO [Concomitant]
     Active Substance: TERIPARATIDE
  11. CALCIUM [Concomitant]
     Active Substance: CALCIUM
  12. VITAMIN D NOS [Concomitant]
     Active Substance: VITAMIN D NOS
  13. MELOXICAM [Concomitant]
     Active Substance: MELOXICAM
  14. FENOFIBRATE [Concomitant]
     Active Substance: FENOFIBRATE
  15. KALETRA [Concomitant]
     Active Substance: LOPINAVIR\RITONAVIR
  16. NORVIR [Concomitant]
     Active Substance: RITONAVIR
  17. PREZCOBIX [Concomitant]
     Active Substance: COBICISTAT\DARUNAVIR ETHANOLATE
  18. RETROVIR [Concomitant]
     Active Substance: ZIDOVUDINE
  19. ACETAMINOPHEN [Concomitant]
     Active Substance: ACETAMINOPHEN
  20. AMOXICILLIN [Concomitant]
     Active Substance: AMOXICILLIN
  21. ASPIRIN [Concomitant]
     Active Substance: ASPIRIN
  22. CELECOXIB [Concomitant]
     Active Substance: CELECOXIB
  23. CHANTIX [Concomitant]
     Active Substance: VARENICLINE TARTRATE
  24. CHLORHEXIDINE [Concomitant]
     Active Substance: CHLORHEXIDINE\CHLORHEXIDINE GLUCONATE
  25. DIPHENOXYLATE [Concomitant]
     Active Substance: DIPHENOXYLATE
  26. FLUARIX NOS [Concomitant]
     Active Substance: INFLUENZA VIRUS VACCINE
  27. GABAPENTIN [Concomitant]
     Active Substance: GABAPENTIN
  28. HYDROCODONE [Concomitant]
     Active Substance: HYDROCODONE
  29. METHYLPREDNISOLONE [Concomitant]
     Active Substance: METHYLPREDNISOLONE
  30. NAPROXEN [Concomitant]
     Active Substance: NAPROXEN
  31. NICOTINE [Concomitant]
     Active Substance: NICOTINE
  32. ONDANSETRON [Concomitant]
     Active Substance: ONDANSETRON
  33. RITONAVIR [Concomitant]
     Active Substance: RITONAVIR
  34. SULFAMETHOXAZOLE AND TRIMETHOPRIM [Concomitant]
     Active Substance: SULFAMETHOXAZOLE\TRIMETHOPRIM
  35. SULFAMETHOXAZOLE [Concomitant]
     Active Substance: SULFAMETHOXAZOLE
  36. TRAMADOL [Concomitant]
     Active Substance: TRAMADOL\TRAMADOL HYDROCHLORIDE
  37. TRAZODONE [Concomitant]
     Active Substance: TRAZODONE HYDROCHLORIDE
  38. ZOLPIDEM [Concomitant]
     Active Substance: ZOLPIDEM TARTRATE

REACTIONS (16)
  - Acute kidney injury [Recovered/Resolved]
  - Osteoporosis [Not Recovered/Not Resolved]
  - Hip fracture [Not Recovered/Not Resolved]
  - Femur fracture [Unknown]
  - Osteonecrosis [Not Recovered/Not Resolved]
  - Drug ineffective [Unknown]
  - Depression [Not Recovered/Not Resolved]
  - Anxiety [Not Recovered/Not Resolved]
  - Bone density decreased [Unknown]
  - Pain [Not Recovered/Not Resolved]
  - Emotional distress [Not Recovered/Not Resolved]
  - Anhedonia [Not Recovered/Not Resolved]
  - Dysstasia [Not Recovered/Not Resolved]
  - Impaired work ability [Not Recovered/Not Resolved]
  - Exercise tolerance decreased [Not Recovered/Not Resolved]
  - Mobility decreased [Not Recovered/Not Resolved]

NARRATIVE: CASE EVENT DATE: 20151118
